FAERS Safety Report 6645436-3 (Version None)
Quarter: 2010Q1

REPORT INFORMATION
  Report Type: 
  Country: None (occurrence: None)
  Receive Date: 20100322
  Receipt Date: 20100315
  Transmission Date: 20100710
  Serious: Yes (Hospitalization)
  Sender: FDA-Public Use
  Company Number: FR-ASTRAZENECA-2010SE11943

PATIENT
  Age: 37 Year
  Sex: Male

DRUGS (8)
  1. SEROQUEL [Suspect]
     Indication: PSYCHOTIC DISORDER
     Route: 048
     Dates: end: 20080603
  2. ETUMINE [Suspect]
     Indication: PSYCHOTIC DISORDER
     Route: 048
     Dates: end: 20080530
  3. ROCEPHIN [Suspect]
     Indication: LUNG DISORDER
     Route: 042
  4. CLOPIXOL [Suspect]
     Indication: PSYCHOTIC DISORDER
     Route: 048
     Dates: start: 20080602, end: 20080611
  5. LARGACTIL [Suspect]
     Indication: PSYCHOTIC DISORDER
     Route: 048
     Dates: start: 20080530, end: 20080811
  6. NOZINAN [Suspect]
     Indication: PSYCHOTIC DISORDER
     Route: 048
     Dates: end: 20080811
  7. DOMINAL [Suspect]
     Indication: PSYCHOTIC DISORDER
     Route: 048
     Dates: end: 20080530
  8. DEPAKENE [Concomitant]
     Indication: EPILEPSY
     Route: 048

REACTIONS (1)
  - STATUS EPILEPTICUS [None]
